FAERS Safety Report 18944280 (Version 37)
Quarter: 2025Q2

REPORT INFORMATION
  Report Type: Spontaneous
  Country: CA (occurrence: CA)
  Receive Date: 20210226
  Receipt Date: 20250604
  Transmission Date: 20250717
  Serious: Yes (Hospitalization, Other)
  Sender: CELLTRION
  Company Number: CA-CELLTRION INC.-2021CA001528

PATIENT

DRUGS (31)
  1. INFLECTRA [Suspect]
     Active Substance: INFLIXIMAB-DYYB
     Indication: Crohn^s disease
     Route: 042
     Dates: start: 20190425
  2. INFLECTRA [Suspect]
     Active Substance: INFLIXIMAB-DYYB
     Route: 042
     Dates: start: 20190425
  3. INFLECTRA [Suspect]
     Active Substance: INFLIXIMAB-DYYB
     Route: 042
     Dates: start: 20190522
  4. INFLECTRA [Suspect]
     Active Substance: INFLIXIMAB-DYYB
     Route: 042
     Dates: start: 20190620
  5. INFLECTRA [Suspect]
     Active Substance: INFLIXIMAB-DYYB
     Route: 042
  6. INFLECTRA [Suspect]
     Active Substance: INFLIXIMAB-DYYB
     Route: 042
     Dates: start: 20210211
  7. INFLECTRA [Suspect]
     Active Substance: INFLIXIMAB-DYYB
     Route: 042
     Dates: start: 20210401, end: 20210401
  8. INFLECTRA [Suspect]
     Active Substance: INFLIXIMAB-DYYB
     Route: 042
     Dates: start: 20210429, end: 20210429
  9. INFLECTRA [Suspect]
     Active Substance: INFLIXIMAB-DYYB
     Route: 042
     Dates: start: 20210908, end: 20211230
  10. INFLECTRA [Suspect]
     Active Substance: INFLIXIMAB-DYYB
     Route: 042
     Dates: start: 20211019
  11. INFLECTRA [Suspect]
     Active Substance: INFLIXIMAB-DYYB
     Route: 042
     Dates: start: 20211102
  12. INFLECTRA [Suspect]
     Active Substance: INFLIXIMAB-DYYB
     Route: 042
     Dates: start: 20211230, end: 20211230
  13. INFLECTRA [Suspect]
     Active Substance: INFLIXIMAB-DYYB
     Route: 042
     Dates: start: 20241119
  14. INFLECTRA [Suspect]
     Active Substance: INFLIXIMAB-DYYB
     Route: 042
     Dates: start: 20250107
  15. INFLECTRA [Suspect]
     Active Substance: INFLIXIMAB-DYYB
     Route: 042
     Dates: start: 20250304
  16. INFLECTRA [Suspect]
     Active Substance: INFLIXIMAB-DYYB
     Route: 042
     Dates: start: 20250528
  17. CHOLESTYRAMINE [Concomitant]
     Active Substance: CHOLESTYRAMINE
  18. CODEINE [Concomitant]
     Active Substance: CODEINE
  19. CODEINE [Concomitant]
     Active Substance: CODEINE
     Route: 065
  20. CODEINE [Concomitant]
     Active Substance: CODEINE
  21. CODEINE [Concomitant]
     Active Substance: CODEINE
  22. DESIPRAMINE [Concomitant]
     Active Substance: DESIPRAMINE
  23. IMODIUM [Concomitant]
     Active Substance: LOPERAMIDE HYDROCHLORIDE
  24. IMODIUM [Concomitant]
     Active Substance: LOPERAMIDE HYDROCHLORIDE
  25. MAGNESIUM [Concomitant]
     Active Substance: MAGNESIUM
  26. METHOTREXATE [Concomitant]
     Active Substance: METHOTREXATE
  27. METHOTREXATE [Concomitant]
     Active Substance: METHOTREXATE
     Dosage: 1 DF, WEEKLY (UNK DOSE)
     Dates: start: 2018
  28. PANTOPRAZOLE SODIUM [Concomitant]
     Active Substance: PANTOPRAZOLE SODIUM
  29. POTASSIUM [Concomitant]
     Active Substance: POTASSIUM
  30. PREDNISONE [Concomitant]
     Active Substance: PREDNISONE
     Dosage: 1 DF, WEEKLY, 8 TABLETS, TAPER BY 1 TABLET ONCE A WEEK
     Route: 065
  31. URSODIOL [Concomitant]
     Active Substance: URSODIOL

REACTIONS (30)
  - Nephrolithiasis [Unknown]
  - Uveitis [Recovered/Resolved]
  - Electrolyte imbalance [Not Recovered/Not Resolved]
  - Blood potassium decreased [Unknown]
  - Blood magnesium decreased [Unknown]
  - Condition aggravated [Recovering/Resolving]
  - Weight fluctuation [Unknown]
  - Gastrointestinal disorder [Unknown]
  - Drug ineffective [Unknown]
  - Weight decreased [Not Recovered/Not Resolved]
  - Anal fissure [Recovered/Resolved]
  - Cardiac disorder [Unknown]
  - Weight increased [Unknown]
  - Extrasystoles [Not Recovered/Not Resolved]
  - Lethargy [Not Recovered/Not Resolved]
  - Malaise [Unknown]
  - Poor venous access [Unknown]
  - Arthralgia [Recovered/Resolved]
  - Blood pressure diastolic increased [Unknown]
  - Blood pressure increased [Unknown]
  - Pharyngitis streptococcal [Not Recovered/Not Resolved]
  - Post procedural infection [Unknown]
  - Pyrexia [Not Recovered/Not Resolved]
  - Pain [Unknown]
  - Infusion site extravasation [Unknown]
  - Off label use [Unknown]
  - Off label use [Unknown]
  - Intentional product use issue [Unknown]
  - Product dose omission issue [Unknown]
  - Off label use [Unknown]

NARRATIVE: CASE EVENT DATE: 20210101
